FAERS Safety Report 16773243 (Version 6)
Quarter: 2022Q2

REPORT INFORMATION
  Report Type: Spontaneous
  Country: US (occurrence: US)
  Receive Date: 20190904
  Receipt Date: 20220506
  Transmission Date: 20220720
  Serious: Yes (Life-Threatening, Hospitalization, Other)
  Sender: FDA-Public Use
  Company Number: PHEH2019US036080

PATIENT
  Age: 19 Year
  Sex: Female
  Weight: 82 kg

DRUGS (5)
  1. KYMRIAH [Suspect]
     Active Substance: TISAGENLECLEUCEL
     Indication: Philadelphia positive acute lymphocytic leukaemia
     Dosage: UNK, ONCE/SINGLE
     Route: 042
     Dates: start: 20190812
  2. CIPROFLOXACIN [Concomitant]
     Active Substance: CIPROFLOXACIN
     Indication: Immunosuppression
     Dosage: 750 MG, Q12H
     Route: 042
     Dates: start: 20190806
  3. VANCOMYCIN [Concomitant]
     Active Substance: VANCOMYCIN
     Indication: Immunosuppression
     Dosage: 15 MG/KG, Q8H
     Route: 042
     Dates: start: 20190813
  4. CEFEPIME [Concomitant]
     Active Substance: CEFEPIME HYDROCHLORIDE
     Indication: Immunosuppression
     Dosage: 2000 MG, Q8H
     Route: 042
     Dates: start: 20190813
  5. KEPPRA [Concomitant]
     Active Substance: LEVETIRACETAM
     Indication: Seizure prophylaxis
     Dosage: 500 MG, Q12H
     Route: 042
     Dates: start: 20190816

REACTIONS (20)
  - Cytokine release syndrome [Recovered/Resolved]
  - Respiratory disorder [Unknown]
  - Urine output decreased [Unknown]
  - Blood fibrinogen decreased [Unknown]
  - Pyrexia [Unknown]
  - Hypotension [Unknown]
  - Hypervolaemia [Unknown]
  - International normalised ratio increased [Unknown]
  - Fibrin D dimer increased [Unknown]
  - Prothrombin time prolonged [Unknown]
  - Activated partial thromboplastin time prolonged [Unknown]
  - Tachypnoea [Unknown]
  - Pneumothorax [Recovered/Resolved]
  - Sedation [Unknown]
  - Immune effector cell-associated neurotoxicity syndrome [Recovered/Resolved]
  - Hallucination [Unknown]
  - Mental status changes [Unknown]
  - Hypervigilance [Unknown]
  - Confusional state [Recovering/Resolving]
  - Neurotoxicity [Unknown]

NARRATIVE: CASE EVENT DATE: 20190813
